FAERS Safety Report 8746538 (Version 2)
Quarter: 2013Q2

REPORT INFORMATION
  Report Type: Spontaneous
  Country: FR (occurrence: FR)
  Receive Date: 20120827
  Receipt Date: 20130605
  Transmission Date: 20140414
  Serious: Yes (Hospitalization)
  Sender: FDA-Public Use
  Company Number: FR-ASTRAZENECA-2012SE60242

PATIENT
  Age: 68 Year
  Sex: Male

DRUGS (8)
  1. MOPRAL [Suspect]
     Indication: HIATUS HERNIA
     Route: 048
     Dates: start: 201103, end: 20120805
  2. CRESTOR [Suspect]
     Indication: DYSLIPIDAEMIA
     Route: 048
  3. COUMADINE [Concomitant]
     Route: 048
  4. AMLOR [Concomitant]
     Route: 048
  5. ATENOLOL [Concomitant]
     Route: 048
  6. KALEORID [Concomitant]
  7. ALLOPURINOL [Concomitant]
  8. ZYLORIC [Concomitant]
     Route: 048

REACTIONS (5)
  - Convulsion [Recovered/Resolved]
  - Hypomagnesaemia [Recovered/Resolved]
  - Hypocalcaemia [Recovered/Resolved]
  - Hypokalaemia [Recovered/Resolved]
  - Muscle spasms [Unknown]
